FAERS Safety Report 9572958 (Version 1)
Quarter: 2013Q4

REPORT INFORMATION
  Report Type: Spontaneous
  Country: US (occurrence: US)
  Receive Date: 20131001
  Receipt Date: 20131001
  Transmission Date: 20140711
  Serious: No
  Sender: FDA-Public Use
  Company Number: US-BIOGENIDEC-2013BI069035

PATIENT
  Age: 61 Year
  Sex: Female

DRUGS (9)
  1. TECFIDERA [Suspect]
     Indication: MULTIPLE SCLEROSIS
     Route: 048
     Dates: start: 20130525, end: 20130531
  2. TECFIDERA [Suspect]
     Indication: MULTIPLE SCLEROSIS
     Route: 048
     Dates: start: 20130601, end: 20130626
  3. CALCIUM WITH VITAMIN D [Concomitant]
  4. ESTRODROL [Concomitant]
  5. FLAXSEED OIL [Concomitant]
  6. LOSARTAN [Concomitant]
  7. MULTIVITAMIN [Concomitant]
  8. SIMVASTATIN [Concomitant]
  9. PREVACID [Concomitant]

REACTIONS (1)
  - Vomiting [Recovered/Resolved]
